FAERS Safety Report 20964513 (Version 1)
Quarter: 2022Q2

REPORT INFORMATION
  Report Type: Report from Study
  Country: BR (occurrence: BR)
  Receive Date: 20220615
  Receipt Date: 20220615
  Transmission Date: 20220721
  Serious: Yes (Other)
  Sender: FDA-Public Use
  Company Number: BR-JNJFOC-20201140342

PATIENT
  Age: 12 Year
  Sex: Male
  Weight: 43.5 kg

DRUGS (4)
  1. INFLIXIMAB [Suspect]
     Active Substance: INFLIXIMAB
     Indication: Crohn^s disease
     Route: 041
     Dates: start: 20201015
  2. REMICADE [Suspect]
     Active Substance: INFLIXIMAB
     Indication: Crohn^s disease
     Route: 041
  3. REMICADE [Suspect]
     Active Substance: INFLIXIMAB
     Dosage: 12 DOSES, WILL TAKE 13 AT THE END OF JUNE.
     Route: 041
     Dates: start: 20201015
  4. AZATHIOPRINE [Concomitant]
     Active Substance: AZATHIOPRINE
     Indication: Crohn^s disease
     Route: 048
     Dates: start: 2018

REACTIONS (10)
  - Crohn^s disease [Not Recovered/Not Resolved]
  - Weight increased [Unknown]
  - Burning sensation [Recovering/Resolving]
  - Rash erythematous [Not Recovered/Not Resolved]
  - Rash [Unknown]
  - Urticaria [Recovered/Resolved]
  - Pruritus [Unknown]
  - Infusion related reaction [Recovering/Resolving]
  - Product preparation issue [Unknown]
  - Off label use [Unknown]

NARRATIVE: CASE EVENT DATE: 20200101
